FAERS Safety Report 7355467-6 (Version None)
Quarter: 2011Q1

REPORT INFORMATION
  Report Type: 
  Country: None (occurrence: None)
  Receive Date: 20110316
  Receipt Date: 20110309
  Transmission Date: 20110831
  Serious: Yes (Hospitalization, Other)
  Sender: FDA-Public Use
  Company Number: AU-ELI_LILLY_AND_COMPANY-AU201102006557

PATIENT
  Sex: Male

DRUGS (16)
  1. PANTOPRAZOLE [Concomitant]
     Indication: GASTROOESOPHAGEAL REFLUX DISEASE
     Dates: start: 20080101
  2. NUROFEN [Concomitant]
     Indication: MUSCULOSKELETAL PAIN
     Dates: start: 20101001
  3. FLUCLOXACILLIN [Concomitant]
     Indication: CELLULITIS
     Dosage: UNK, UNK
     Dates: start: 20110212, end: 20110212
  4. ACTILAX                            /00841201/ [Concomitant]
     Indication: COLITIS ULCERATIVE
     Dates: start: 20110131
  5. GEMCITABINE HYDROCHLORIDE [Suspect]
     Indication: PANCREATIC CARCINOMA
     Dosage: 1000 MG/M2, WEEKLY (1/W)
     Route: 065
     Dates: start: 20110210
  6. OXYCONTIN [Concomitant]
     Indication: MUSCULOSKELETAL PAIN
     Dates: start: 20110101
  7. PREGABALIN [Concomitant]
     Indication: MUSCULOSKELETAL PAIN
     Dates: start: 20110208
  8. PENTASA [Concomitant]
     Indication: COLITIS ULCERATIVE
     Dates: start: 20080101
  9. ONDANSETRON [Concomitant]
     Indication: VOMITING
     Dates: start: 20110210, end: 20110210
  10. MESALAMINE [Concomitant]
     Indication: COLITIS ULCERATIVE
     Dates: start: 20101201
  11. PARACETAMOL [Concomitant]
     Indication: MUSCULOSKELETAL PAIN
     Dates: start: 20110201
  12. MINERAL TAB [Concomitant]
     Indication: PROPHYLAXIS
     Dates: start: 20110101
  13. OXYNORM [Concomitant]
     Indication: MUSCULOSKELETAL PAIN
     Dates: start: 20110101
  14. SILYBUM MARIANUM [Concomitant]
     Indication: PROPHYLAXIS
     Dates: start: 20110101
  15. METOCLOPRAMIDE HCL [Concomitant]
     Indication: NAUSEA
     Dates: start: 20110210
  16. LACTULOSE [Concomitant]

REACTIONS (2)
  - CELLULITIS [None]
  - PYREXIA [None]
